FAERS Safety Report 6613340-2 (Version None)
Quarter: 2010Q1

REPORT INFORMATION
  Report Type: 
  Country: None (occurrence: None)
  Receive Date: 20100304
  Receipt Date: 20100226
  Transmission Date: 20100710
  Serious: No
  Sender: FDA-Public Use
  Company Number: PHHY2009JP43607

PATIENT
  Sex: Female

DRUGS (9)
  1. COMTAN CMT+TAB [Suspect]
     Indication: DRUG EFFECT DECREASED
     Dosage: 200MG, DAILY
     Route: 048
     Dates: start: 20080719, end: 20080901
  2. CARBIDOPA AND LEVODOPA [Concomitant]
     Indication: PARKINSON'S DISEASE
     Dosage: 50 MG, UNK
     Route: 048
     Dates: start: 20050319
  3. CARBIDOPA AND LEVODOPA [Concomitant]
     Dosage: 150 MG, UNK
     Route: 048
  4. CARBIDOPA AND LEVODOPA [Concomitant]
     Dosage: 200 MG, UNK
     Route: 048
  5. CARBIDOPA AND LEVODOPA [Concomitant]
     Dosage: 250 MG, UNK
     Route: 048
  6. CARBIDOPA AND LEVODOPA [Concomitant]
     Dosage: 300 MG, UNK
     Route: 048
  7. CARBIDOPA AND LEVODOPA [Concomitant]
     Dosage: 350 MG, UNK
     Route: 048
  8. SYMMETREL [Concomitant]
     Indication: PARKINSON'S DISEASE
     Dosage: 250
     Route: 048
  9. PRAMIPEXOLE DIHYDROCHLORIDE [Concomitant]
     Indication: PARKINSON'S DISEASE
     Dosage: 2 MG, UNK
     Route: 048

REACTIONS (1)
  - DRUG INEFFECTIVE [None]
